FAERS Safety Report 6713014-3 (Version None)
Quarter: 2010Q2

REPORT INFORMATION
  Report Type: 
  Country: None (occurrence: None)
  Receive Date: 20100506
  Receipt Date: 20100418
  Transmission Date: 20101027
  Serious: Yes (Other)
  Sender: FDA-Public Use
  Company Number: IT-EISAI INC.-E3810-03738-SPO-IT

PATIENT
  Age: 52 Year
  Sex: Female

DRUGS (5)
  1. PARIET (RABEPRAZOLE) [Suspect]
     Dosage: UNKNOWN
     Route: 048
  2. COUMADIN [Suspect]
     Dosage: UNKNOWN
     Route: 048
  3. LORANS [Suspect]
     Dosage: UNKNOWN
     Route: 065
  4. DEPALGOS [Suspect]
     Dosage: UNKNOWN
     Route: 065
  5. ZOCOR [Suspect]
     Dosage: UNKNOWN
     Route: 065

REACTIONS (3)
  - SELF INJURIOUS BEHAVIOUR [None]
  - SLUGGISHNESS [None]
  - SOPOR [None]
